FAERS Safety Report 15737048 (Version 1)
Quarter: 2018Q4

REPORT INFORMATION
  Report Type: Spontaneous
  Country: ES (occurrence: ES)
  Receive Date: 20181218
  Receipt Date: 20181218
  Transmission Date: 20190205
  Serious: Yes (Other)
  Sender: FDA-Public Use
  Company Number: ES-MYLANLABS-2018M1092941

PATIENT
  Age: 75 Year
  Sex: Female

DRUGS (5)
  1. TIGECYCLINE. [Suspect]
     Active Substance: TIGECYCLINE
     Indication: ENTEROBACTER INFECTION
     Dosage: 100 MILLIGRAM
     Route: 051
  2. FOSFOMYCIN [Interacting]
     Active Substance: FOSFOMYCIN
     Indication: ENTEROBACTER INFECTION
     Dosage: 1 GRAM, Q8H
     Route: 051
  3. TIGECYCLINE. [Suspect]
     Active Substance: TIGECYCLINE
     Dosage: 50 MILLIGRAM
     Route: 051
  4. CIPROFLOXACIN. [Suspect]
     Active Substance: CIPROFLOXACIN
     Indication: ENTEROBACTER INFECTION
     Dosage: 400 MILLIGRAM, Q8H
     Route: 051
  5. AMIKACIN. [Concomitant]
     Active Substance: AMIKACIN
     Indication: ENTEROBACTER INFECTION
     Route: 065

REACTIONS (2)
  - Pathogen resistance [Unknown]
  - Drug interaction [Unknown]
